FAERS Safety Report 9902884 (Version 3)
Quarter: 2014Q2

REPORT INFORMATION
  Report Type: Report from Study
  Country: TW (occurrence: TW)
  Receive Date: 20140217
  Receipt Date: 20140417
  Transmission Date: 20141212
  Serious: Yes (Hospitalization, Other)
  Sender: FDA-Public Use
  Company Number: PHHY2014TW007501

PATIENT
  Age: 74 Year
  Sex: Male
  Weight: 58 kg

DRUGS (19)
  1. AMN107 [Suspect]
     Indication: CHRONIC MYELOID LEUKAEMIA
     Dosage: 600 MG, QD
     Route: 048
     Dates: start: 20111219
  2. XANAX [Concomitant]
     Dates: start: 20120307, end: 20120731
  3. NORVASC [Concomitant]
     Dates: start: 20120808, end: 20120925
  4. QUINAPRIL [Concomitant]
     Dates: start: 20120926, end: 20121218
  5. AMLODIPINE [Concomitant]
     Dates: start: 20120926
  6. ACETAMINOPHEN [Concomitant]
     Dates: start: 20120926, end: 20120929
  7. PROPRANOLOL [Concomitant]
     Dates: start: 20121219, end: 20130930
  8. TAMLOSIN [Concomitant]
     Dates: start: 20130123, end: 20130805
  9. ACETYLSALICYLIC ACID [Concomitant]
     Dates: start: 20130220
  10. NIFEDIPINE [Concomitant]
     Dates: start: 20130513, end: 20131014
  11. LOSARTAN [Concomitant]
     Dates: start: 20130513, end: 20130902
  12. LOSARTAN POTASSIUM AND HYDROCHLOROTHIAZIDE [Concomitant]
     Dates: start: 20130902, end: 20131025
  13. HYDROCHLOROTHIAZIDE [Concomitant]
     Dates: start: 20130930, end: 20131025
  14. ATENOLOL [Concomitant]
     Dates: start: 20131120, end: 20131218
  15. ISOSORBIDE DINITRATE [Concomitant]
     Dates: start: 20131216, end: 20131217
  16. ATROPINE [Concomitant]
     Dates: start: 20131216, end: 20131216
  17. FUROSEMIDE [Concomitant]
     Dates: start: 20131216, end: 20131216
  18. CALCIUM CHLORIDE [Concomitant]
     Dates: start: 20140103, end: 20140103
  19. CEFAZOLIN [Concomitant]
     Dates: start: 20140107, end: 20140107

REACTIONS (9)
  - Bradycardia [Recovering/Resolving]
  - Atrioventricular block [Recovering/Resolving]
  - Pleural effusion [Recovered/Resolved]
  - Chest discomfort [Recovered/Resolved]
  - Dyspnoea [Recovered/Resolved]
  - Acute pulmonary oedema [Unknown]
  - Cardiomegaly [Unknown]
  - Sinus bradycardia [Unknown]
  - Palpitations [Unknown]
